FAERS Safety Report 24019127 (Version 1)
Quarter: 2024Q2

REPORT INFORMATION
  Report Type: Spontaneous
  Country: US (occurrence: US)
  Receive Date: 20240627
  Receipt Date: 20240627
  Transmission Date: 20240716
  Serious: Yes (Other)
  Sender: FDA-Public Use
  Company Number: US-IGSA-BIG0029550

PATIENT
  Sex: Female

DRUGS (1)
  1. VISTASEAL [Suspect]
     Active Substance: FIBRINOGEN HUMAN\HUMAN THROMBIN
     Indication: Surgery
     Dosage: 1 UNKNOWN, SINGLE
     Route: 065
     Dates: start: 20240227, end: 20240227

REACTIONS (4)
  - Oedema [Unknown]
  - Pain [Unknown]
  - Wound infection [Unknown]
  - Wound drainage [Unknown]

NARRATIVE: CASE EVENT DATE: 20240510
